FAERS Safety Report 19399495 (Version 1)
Quarter: 2021Q2

REPORT INFORMATION
  Report Type: Spontaneous
  Country: ES (occurrence: ES)
  Receive Date: 20210610
  Receipt Date: 20210610
  Transmission Date: 20210717
  Serious: Yes (Hospitalization, Other)
  Sender: FDA-Public Use
  Company Number: ES-GILEAD-2021-0534534

PATIENT
  Age: 22 Year
  Sex: Female

DRUGS (3)
  1. YESCARTA [Suspect]
     Active Substance: AXICABTAGENE CILOLEUCEL
     Indication: NON-HODGKIN^S LYMPHOMA
     Dosage: UNK
     Route: 042
     Dates: start: 20201209, end: 20201209
  2. FLUDARABINE [Concomitant]
     Active Substance: FLUDARABINE PHOSPHATE
     Indication: LYMPHODEPLETION
     Dosage: UNK
     Dates: start: 20201204, end: 20201206
  3. CYCLOPHOSPHAMIDE. [Concomitant]
     Active Substance: CYCLOPHOSPHAMIDE
     Indication: LYMPHODEPLETION
     Dosage: UNK
     Dates: start: 20201204, end: 20201206

REACTIONS (5)
  - Sinus tachycardia [Recovered/Resolved]
  - Pyrexia [Unknown]
  - Hypertension [Unknown]
  - Pancytopenia [Recovered/Resolved]
  - Cytokine release syndrome [Unknown]
